FAERS Safety Report 11536785 (Version 1)
Quarter: 2015Q3

REPORT INFORMATION
  Report Type: Report from Study
  Country: HU (occurrence: HU)
  Receive Date: 20150922
  Receipt Date: 20150922
  Transmission Date: 20151125
  Serious: Yes (Other)
  Sender: FDA-Public Use
  Company Number: HU-ABBVIE-15P-076-1467811-00

PATIENT
  Age: 80 Year
  Sex: Female

DRUGS (6)
  1. COVEREX AS [Concomitant]
     Indication: HYPERTENSION
     Dates: start: 2005
  2. KREON [Suspect]
     Active Substance: PANCRELIPASE
     Indication: DYSPEPSIA
     Route: 065
     Dates: start: 201507
  3. KALIUM [Concomitant]
     Active Substance: POTASSIUM CHLORIDE
     Indication: DIURETIC THERAPY
     Dates: start: 2005
  4. MEFORAL [Concomitant]
     Indication: DIABETES MELLITUS
     Dates: start: 2005
  5. FURON [Concomitant]
     Active Substance: FUROSEMIDE
     Indication: DIURETIC THERAPY
     Dates: start: 2005
  6. BETALOC [Concomitant]
     Active Substance: METOPROLOL TARTRATE
     Indication: ANGINA PECTORIS
     Dates: start: 2005

REACTIONS (3)
  - Fall [Unknown]
  - Dizziness [Recovering/Resolving]
  - Hypertension [Recovering/Resolving]

NARRATIVE: CASE EVENT DATE: 2015
